FAERS Safety Report 9845892 (Version 2)
Quarter: 2014Q1

REPORT INFORMATION
  Report Type: Report from Study
  Country: US (occurrence: US)
  Receive Date: 20140127
  Receipt Date: 20140127
  Transmission Date: 20141002
  Serious: No
  Sender: FDA-Public Use
  Company Number: PHEH2013US022306

PATIENT
  Age: 48 Year
  Sex: Female
  Weight: 72.56 kg

DRUGS (8)
  1. TASIGNA [Suspect]
     Indication: CHRONIC MYELOID LEUKAEMIA
     Dosage: 2 DF (150 MG), BID
     Route: 048
     Dates: start: 2011
  2. ENBREL [Concomitant]
  3. CRESTOR [Concomitant]
     Dosage: 10 MG
     Route: 048
  4. SYNTHROID [Concomitant]
     Dosage: 100 UG
     Route: 048
  5. PREDNISONE [Concomitant]
     Dosage: 10 MG
     Route: 048
  6. VITAMIN D [Concomitant]
     Dosage: 400 IU, UNK
     Route: 048
  7. VITAMIN B12 [Concomitant]
     Dosage: 500 UG
     Route: 048
  8. IRON [Concomitant]
     Route: 048

REACTIONS (3)
  - Urinary tract infection [Unknown]
  - Fatigue [Unknown]
  - Bone pain [Unknown]
